FAERS Safety Report 4964221-1 (Version None)
Quarter: 2006Q1

REPORT INFORMATION
  Report Type: 
  Country: None (occurrence: None)
  Receive Date: 20060331
  Receipt Date: 20060317
  Transmission Date: 20060701
  Serious: Yes (Other)
  Sender: FDA-Public Use
  Company Number: US016857

PATIENT
  Age: 10 Year
  Sex: Male
  Weight: 43.0917 kg

DRUGS (4)
  1. GABITRIL [Suspect]
     Indication: ANXIETY
     Dosage: 4 MG QD ORAL
     Route: 048
     Dates: start: 20041201, end: 20050301
  2. GABITRIL [Suspect]
     Indication: NIGHTMARE
     Dosage: 4 MG QD ORAL
     Route: 048
     Dates: start: 20041201, end: 20050301
  3. LAMICTAL [Suspect]
     Indication: BIPOLAR DISORDER
     Dosage: 200 MG QD ORAL
     Route: 048
     Dates: start: 20040901
  4. SEROQUEL [Suspect]
     Indication: BIPOLAR DISORDER
     Dosage: 50 MG QHS ORAL
     Route: 048
     Dates: start: 20050104

REACTIONS (3)
  - ANXIETY [None]
  - CHLOROPSIA [None]
  - NIGHTMARE [None]
